FAERS Safety Report 7632738-7 (Version None)
Quarter: 2011Q3

REPORT INFORMATION
  Report Type: 
  Country: None (occurrence: None)
  Receive Date: 20110725
  Receipt Date: 20101216
  Transmission Date: 20111222
  Serious: Yes (Other)
  Sender: FDA-Public Use
  Company Number: US-BRISTOL-MYERS SQUIBB COMPANY-15445786

PATIENT
  Age: 77 Year
  Sex: Female
  Weight: 69 kg

DRUGS (15)
  1. AZITHROMYCIN [Suspect]
     Indication: OVERGROWTH BACTERIAL
     Dosage: TAKES ATLEAST 2 WEEKS OF EVERY MONTH
  2. LOMOTIL [Concomitant]
  3. PLAQUENIL [Concomitant]
  4. COUMADIN [Suspect]
  5. DOXYCYCLINE [Suspect]
     Indication: IMPAIRED GASTRIC EMPTYING
     Dosage: TAKES ATLEAST 2 WEEKS OF EVERY MONTH
  6. EPIGEN [Concomitant]
  7. DOXYCYCLINE [Suspect]
     Indication: OVERGROWTH BACTERIAL
     Dosage: TAKES ATLEAST 2 WEEKS OF EVERY MONTH
  8. GABAPENTIN [Concomitant]
  9. VITAMIN B-12 [Concomitant]
     Dosage: INJ
  10. AZITHROMYCIN [Suspect]
     Indication: IMPAIRED GASTRIC EMPTYING
     Dosage: TAKES ATLEAST 2 WEEKS OF EVERY MONTH
  11. METHOTREXATE [Concomitant]
  12. FOLIC ACID [Concomitant]
  13. VITAMIN D [Concomitant]
  14. CITRICAL [Concomitant]
  15. PREDNISONE [Concomitant]

REACTIONS (1)
  - INTERNATIONAL NORMALISED RATIO DECREASED [None]
